FAERS Safety Report 7777590-4 (Version None)
Quarter: 2011Q3

REPORT INFORMATION
  Report Type: 
  Country: None (occurrence: None)
  Receive Date: 20110926
  Receipt Date: 20110919
  Transmission Date: 20111222
  Serious: Yes (Hospitalization)
  Sender: FDA-Public Use
  Company Number: CA-UCBSA-034511

PATIENT
  Sex: Female
  Weight: 61.234 kg

DRUGS (9)
  1. CIMZIA [Suspect]
     Indication: RHEUMATOID ARTHRITIS
     Route: 058
     Dates: start: 20090101
  2. TYLENOL-500 [Concomitant]
     Indication: RHEUMATOID ARTHRITIS
  3. CALCIUM/FOLIC ACID/VIT D [Concomitant]
  4. TYLENOL-500 [Concomitant]
     Indication: PAIN
  5. CALCIUM/FOLIC ACID/VIT D [Concomitant]
  6. ACTONEL [Concomitant]
     Indication: OSTEOPOROSIS
  7. METHOTREXATE [Concomitant]
     Indication: RHEUMATOID ARTHRITIS
     Route: 058
     Dates: start: 20070101
  8. PREDNISONE [Concomitant]
     Indication: RHEUMATOID ARTHRITIS
     Route: 048
     Dates: start: 20060101
  9. CALCIUM/FOLIC ACID/VIT D [Concomitant]
     Indication: SUPPLEMENTATION THERAPY

REACTIONS (8)
  - EPISTAXIS [None]
  - HYPERTHERMIA [None]
  - MUSCLE RUPTURE [None]
  - SWELLING [None]
  - CONTUSION [None]
  - MUSCLE SPASMS [None]
  - MUSCULAR WEAKNESS [None]
  - DECREASED APPETITE [None]
